FAERS Safety Report 14025367 (Version 2)
Quarter: 2017Q4

REPORT INFORMATION
  Report Type: Spontaneous
  Country: PL (occurrence: PL)
  Receive Date: 20170929
  Receipt Date: 20171024
  Transmission Date: 20180321
  Serious: Yes (Hospitalization, Other)
  Sender: FDA-Public Use
  Company Number: PL-KADMON PHARMACEUTICALS, LLC-KAD-201709-00946

PATIENT
  Age: 53 Year
  Sex: Female

DRUGS (5)
  1. RIBAVIRIN. [Suspect]
     Active Substance: RIBAVIRIN
     Indication: HEPATITIS C
     Dosage: TABLET
     Route: 048
     Dates: start: 20161216
  2. AZA [Concomitant]
     Active Substance: AZATHIOPRINE
     Indication: IMMUNOSUPPRESSANT DRUG THERAPY
  3. EXVIERA [Suspect]
     Active Substance: DASABUVIR
     Indication: HEPATITIS C
     Dosage: TABLET
     Route: 048
     Dates: start: 20161216, end: 2017
  4. UDCA [Concomitant]
     Active Substance: URSODIOL
     Indication: IMMUNOSUPPRESSANT DRUG THERAPY
  5. VIEKIRAX [Suspect]
     Active Substance: OMBITASVIR\PARITAPREVIR\RITONAVIR
     Indication: HEPATITIS C
     Dosage: TABLET
     Route: 048
     Dates: start: 20161216, end: 2017

REACTIONS (9)
  - Staphylococcal infection [Unknown]
  - Abscess [Unknown]
  - Disorientation [Unknown]
  - Dehydration [Unknown]
  - Bradyphrenia [Unknown]
  - Asthenia [Unknown]
  - Hepatic failure [Unknown]
  - Child-Pugh-Turcotte score increased [Unknown]
  - Diarrhoea [Unknown]

NARRATIVE: CASE EVENT DATE: 2017
